FAERS Safety Report 26120820 (Version 3)
Quarter: 2025Q4

REPORT INFORMATION
  Report Type: Report from Study
  Country: EU (occurrence: EU)
  Receive Date: 20251204
  Receipt Date: 20251214
  Transmission Date: 20260118
  Serious: Yes (Hospitalization, Other)
  Sender: ABBVIE
  Company Number: EU-ABBVIE-6485894

PATIENT
  Age: 70 Year
  Sex: Male

DRUGS (13)
  1. CARBIDOPA\LEVODOPA [Suspect]
     Active Substance: CARBIDOPA\LEVODOPA
     Indication: Parkinson^s disease
     Dosage: MD: 8.0 ML; CRT: 2.7 ML/H, ED: 1.5 ML
     Route: 050
     Dates: start: 20210707
  2. CARBIDOPA\LEVODOPA [Suspect]
     Active Substance: CARBIDOPA\LEVODOPA
     Dosage: MD: 8 ML; CRT: 2.8 ML/H; ED: 1.5 ML
     Route: 050
  3. AMLODIPINE [Concomitant]
     Active Substance: AMLODIPINE BESYLATE
     Indication: Product used for unknown indication
     Dosage: 5 MG 0-0-1
  4. ATORVASTATIN [Concomitant]
     Active Substance: ATORVASTATIN
     Indication: Product used for unknown indication
     Dosage: 20 MG 0-0-1
  5. TAMSULOSIN [Concomitant]
     Active Substance: TAMSULOSIN
     Indication: Product used for unknown indication
     Dosage: 0.4 MG 0-0-1
  6. FOLIC ACID [Concomitant]
     Active Substance: FOLIC ACID
     Indication: Product used for unknown indication
     Dosage: 5 MG 1-0-0
  7. PANTOPRAZOLE [Concomitant]
     Active Substance: PANTOPRAZOLE
     Indication: Product used for unknown indication
     Dosage: 40 MG 1-0-0
  8. QUETIAPINE [Concomitant]
     Active Substance: QUETIAPINE
     Indication: Product used for unknown indication
     Dosage: 25 MG 0-0-3
  9. VENLAFAXINE [Concomitant]
     Active Substance: VENLAFAXINE HYDROCHLORIDE
     Indication: Product used for unknown indication
     Dosage: 75 MG 1-0-0
  10. ZOPICLONE [Concomitant]
     Active Substance: ZOPICLONE
     Indication: Product used for unknown indication
     Dosage: 3.75 MG 0-0-0-1
  11. BOTULINUM TOXIN NOS [Concomitant]
     Active Substance: BOTULINUM TOXIN NOS
     Indication: Apraxia
  12. ASPIRIN [Concomitant]
     Active Substance: ASPIRIN
     Indication: Product used for unknown indication
     Dosage: 100 MG 1-0-1, ONE IN MORNING
  13. AMOXICILLIN\CLAVULANATE POTASSIUM [Concomitant]
     Active Substance: AMOXICILLIN\CLAVULANATE POTASSIUM
     Indication: Product used for unknown indication
     Dosage: 875/125 MGN1-1-1-0 FOR 7 DAYS

REACTIONS (32)
  - Gastritis [Unknown]
  - Fall [Recovered/Resolved]
  - Stoma site hypergranulation [Not Recovered/Not Resolved]
  - Diarrhoea [Not Recovered/Not Resolved]
  - Device kink [Recovered/Resolved]
  - Device dislocation [Recovered/Resolved]
  - Device issue [Unknown]
  - Device dislocation [Unknown]
  - Abdominal pain upper [Not Recovered/Not Resolved]
  - Device dislocation [Unknown]
  - Hyperkinesia [Unknown]
  - Delirium [Unknown]
  - Abdominal pain [Recovered/Resolved]
  - C-reactive protein increased [Unknown]
  - Intussusception [Unknown]
  - General physical health deterioration [Unknown]
  - Balance disorder [Recovering/Resolving]
  - Muscle rigidity [Not Recovered/Not Resolved]
  - Reduced facial expression [Unknown]
  - Dysdiadochokinesis [Unknown]
  - Inflammatory marker increased [Unknown]
  - Infection [Recovered/Resolved]
  - Obesity [Unknown]
  - Gastric polyps [Unknown]
  - Cyst [Unknown]
  - Jejunal ulcer [Unknown]
  - Scar [Unknown]
  - Lung consolidation [Unknown]
  - Device dislocation [Recovered/Resolved]
  - Deep brain stimulation [Unknown]
  - Pneumonia aspiration [Unknown]
  - Intestinal obstruction [Unknown]

NARRATIVE: CASE EVENT DATE: 20230901
